FAERS Safety Report 11506980 (Version 1)
Quarter: 2015Q3

REPORT INFORMATION
  Report Type: Spontaneous
  Country: US (occurrence: None)
  Receive Date: 20150914
  Receipt Date: 20150914
  Transmission Date: 20151125
  Serious: No
  Sender: FDA-Public Use
  Company Number: None

PATIENT
  Sex: Female

DRUGS (1)
  1. IBRANCE [Suspect]
     Active Substance: PALBOCICLIB
     Indication: BREAST CANCER
     Dosage: 125 MG, QD X 21 DAYS
     Route: 048
     Dates: start: 201503, end: 201508

REACTIONS (3)
  - Fatigue [None]
  - Headache [None]
  - Nausea [None]

NARRATIVE: CASE EVENT DATE: 2015
